FAERS Safety Report 13932373 (Version 3)
Quarter: 2017Q4

REPORT INFORMATION
  Report Type: Spontaneous
  Country: MA (occurrence: MA)
  Receive Date: 20170904
  Receipt Date: 20171011
  Transmission Date: 20180320
  Serious: Yes (Other)
  Sender: FDA-Public Use
  Company Number: MA-ROCHE-1986460

PATIENT
  Age: 68 Year
  Sex: Male

DRUGS (2)
  1. CHLORAMINOPHENE [Suspect]
     Active Substance: CHLORAMBUCIL
     Indication: LYMPHOCYTIC LYMPHOMA
     Route: 065
  2. MABTHERA [Suspect]
     Active Substance: RITUXIMAB
     Indication: LYMPHOCYTIC LYMPHOMA
     Route: 042

REACTIONS (4)
  - Tachycardia [Recovered/Resolved]
  - Asphyxia [Recovered/Resolved]
  - Hypotension [Recovering/Resolving]
  - Dyspnoea [Recovered/Resolved]
